FAERS Safety Report 19321766 (Version 1)
Quarter: 2021Q2

REPORT INFORMATION
  Report Type: Spontaneous
  Country: FR (occurrence: FR)
  Receive Date: 20210528
  Receipt Date: 20210528
  Transmission Date: 20210717
  Serious: Yes (Life-Threatening)
  Sender: FDA-Public Use
  Company Number: FR-SUN PHARMACEUTICAL INDUSTRIES LTD-2021RR-298393

PATIENT
  Age: 49 Year
  Sex: Female
  Weight: 47 kg

DRUGS (3)
  1. SERESTA 50 MG, COMPRIME SECABLE [Suspect]
     Active Substance: OXAZEPAM
     Indication: ANXIETY
     Dosage: 200 MILLIGRAM, DAILY
     Route: 048
     Dates: start: 20210215
  2. EPCLUSA [Suspect]
     Active Substance: SOFOSBUVIR\VELPATASVIR
     Indication: HEPATITIS C VIRUS TEST POSITIVE
     Dosage: 1 DOSAGE FORM, DAILY
     Route: 048
     Dates: start: 20210401, end: 20210403
  3. MIRTAZAPINE. [Suspect]
     Active Substance: MIRTAZAPINE
     Indication: DEPRESSION
     Dosage: 15 MILLIGRAM, DAILY
     Route: 048
     Dates: start: 20210215

REACTIONS (2)
  - Depression [Not Recovered/Not Resolved]
  - Suicide attempt [Recovered/Resolved]

NARRATIVE: CASE EVENT DATE: 20210403
